FAERS Safety Report 10005214 (Version 1)
Quarter: 2014Q1

REPORT INFORMATION
  Report Type: Spontaneous
  Country: DE (occurrence: DE)
  Receive Date: 20140312
  Receipt Date: 20140312
  Transmission Date: 20141002
  Serious: Yes (Other)
  Sender: FDA-Public Use
  Company Number: DE-TEVA-466491GER

PATIENT
  Age: 60 Year
  Sex: Male

DRUGS (3)
  1. MCP [Suspect]
     Indication: NAUSEA
     Dosage: 30 MILLIGRAM DAILY;
     Dates: start: 201304, end: 201310
  2. METFORMIN [Concomitant]
     Indication: DIABETES MELLITUS
     Dosage: 3000 MILLIGRAM DAILY;
  3. MOXONIDIN [Concomitant]
     Indication: HYPERTENSION
     Dosage: .4 MILLIGRAM DAILY;

REACTIONS (5)
  - Dyskinesia [Not Recovered/Not Resolved]
  - Parkinsonism [Recovered/Resolved]
  - Speech disorder [Not Recovered/Not Resolved]
  - Tardive dyskinesia [Not Recovered/Not Resolved]
  - Dyskinesia [Not Recovered/Not Resolved]
